FAERS Safety Report 16911286 (Version 1)
Quarter: 2019Q4

REPORT INFORMATION
  Report Type: Report from Study
  Country: US (occurrence: US)
  Receive Date: 20191013
  Receipt Date: 20191013
  Transmission Date: 20200122
  Serious: Yes (Other)
  Sender: FDA-Public Use
  Company Number: US-AMGEN-USASL2019166053

PATIENT
  Age: 77 Year
  Sex: Female

DRUGS (1)
  1. REPATHA [Suspect]
     Active Substance: EVOLOCUMAB
     Indication: HYPERCHOLESTEROLAEMIA
     Dosage: 140 MILLIGRAM, Q2WK
     Route: 065

REACTIONS (6)
  - Eye colour change [Recovered/Resolved]
  - Contusion [Unknown]
  - Haemorrhage [Unknown]
  - Feeling abnormal [Unknown]
  - Heart rate irregular [Unknown]
  - Alopecia [Unknown]

NARRATIVE: CASE EVENT DATE: 201910
